FAERS Safety Report 16038385 (Version 1)
Quarter: 2019Q1

REPORT INFORMATION
  Report Type: Other
  Country: None (occurrence: US)
  Receive Date: 20190305
  Receipt Date: 20190305
  Transmission Date: 20190418
  Serious: Yes (Death, Hospitalization)
  Sender: FDA-Public Use
  Company Number: US-MEDAC PHARMA, INC.-2063591

PATIENT
  Age: 21 Year
  Sex: Female
  Weight: 80 kg

DRUGS (5)
  1. PREDNISONE. [Suspect]
     Active Substance: PREDNISONE
  2. METHOTREXATE. [Suspect]
     Active Substance: METHOTREXATE
  3. CYTARABINE. [Suspect]
     Active Substance: CYTARABINE
  4. ONCASPAR [Suspect]
     Active Substance: PEGASPARGASE
     Route: 051
  5. VINCRISTINE SULFATE. [Suspect]
     Active Substance: VINCRISTINE SULFATE

REACTIONS (12)
  - Haemorrhage [Unknown]
  - Gastric haemorrhage [Unknown]
  - Agitation [Unknown]
  - Tumour lysis syndrome [Unknown]
  - Venoocclusive liver disease [Unknown]
  - Pulmonary haemorrhage [Unknown]
  - Hepatitis acute [Unknown]
  - Oxygen saturation decreased [Unknown]
  - Fluid overload [Unknown]
  - Multiple organ dysfunction syndrome [Fatal]
  - Oedema [Unknown]
  - Acute kidney injury [Unknown]

NARRATIVE: CASE EVENT DATE: 20181005
